FAERS Safety Report 9469287 (Version 2)
Quarter: 2013Q3

REPORT INFORMATION
  Report Type: Spontaneous
  Country: US (occurrence: None)
  Receive Date: 20130815
  Receipt Date: 20130905
  Transmission Date: 20140515
  Serious: Yes (Death)
  Sender: FDA-Public Use
  Company Number: 1841242

PATIENT
  Age: 60 Year
  Sex: Female

DRUGS (6)
  1. VINCRISTINE SULPHATE [Suspect]
     Indication: LYMPHOMA
     Route: 042
  2. IBRITUMOMAB TIUXETAN [Suspect]
     Indication: LYMPHOMA
     Route: 042
  3. RITUXIMAB [Suspect]
     Indication: LYMPHOMA
     Route: 042
  4. CYCLOPHOSPHAMIDE [Suspect]
     Indication: LYMPHOMA
     Route: 042
  5. DOXORUBICIN [Suspect]
     Indication: LYMPHOMA
     Route: 042
  6. PREDNISOLONE [Suspect]
     Indication: LYMPHOMA
     Route: 048

REACTIONS (1)
  - Progressive multifocal leukoencephalopathy [None]
